FAERS Safety Report 17846573 (Version 3)
Quarter: 2020Q3

REPORT INFORMATION
  Report Type: Spontaneous
  Country: US (occurrence: US)
  Receive Date: 20200601
  Receipt Date: 20200709
  Transmission Date: 20201103
  Serious: Yes (Other)
  Sender: FDA-Public Use
  Company Number: US-PFIZER INC-2020209320

PATIENT
  Age: 61 Year
  Sex: Female

DRUGS (1)
  1. DEPO?MEDROL [Suspect]
     Active Substance: METHYLPREDNISOLONE ACETATE
     Indication: PAIN MANAGEMENT
     Dosage: UNK (84 AND 34 DAYS BEFORE HOSPITAL ADMISSION)
     Route: 008

REACTIONS (4)
  - Meningitis fungal [Recovered/Resolved]
  - Incorrect route of product administration [Unknown]
  - Product contamination microbial [Recovered/Resolved]
  - Off label use [Unknown]
